FAERS Safety Report 4968604-5 (Version None)
Quarter: 2006Q2

REPORT INFORMATION
  Report Type: 
  Country: None (occurrence: None)
  Receive Date: 20060405
  Receipt Date: 20060328
  Transmission Date: 20061013
  Serious: Yes (Hospitalization, Disabling)
  Sender: FDA-Public Use
  Company Number: ZONI002303

PATIENT
  Age: 47 Year
  Sex: Male

DRUGS (2)
  1. ZONISAMIDE [Suspect]
     Indication: EPILEPSY
     Dosage: SEE IMAGE
     Route: 048
     Dates: start: 20030711, end: 20030715
  2. ZONISAMIDE [Suspect]
     Indication: EPILEPSY
     Dosage: SEE IMAGE
     Route: 048
     Dates: start: 20030716, end: 20030809

REACTIONS (8)
  - ALANINE AMINOTRANSFERASE INCREASED [None]
  - ASPARTATE AMINOTRANSFERASE INCREASED [None]
  - CONJUNCTIVAL ADHESION [None]
  - CONJUNCTIVAL EROSION [None]
  - LACRIMATION DECREASED [None]
  - LIVER DISORDER [None]
  - TOXIC EPIDERMAL NECROLYSIS [None]
  - URINE OUTPUT DECREASED [None]
